FAERS Safety Report 8298502 (Version 2)
Quarter: 2014Q1

REPORT INFORMATION
  Report Type: Spontaneous
  Country: US (occurrence: US)
  Receive Date: 20111219
  Receipt Date: 20140108
  Transmission Date: 20141002
  Serious: No
  Sender: FDA-Public Use
  Company Number: US-ASTRAZENECA-2010SE52003

PATIENT
  Age: 71 Year
  Sex: Male
  Weight: 79.8 kg

DRUGS (9)
  1. ATENOLOL [Suspect]
     Indication: HYPERTENSION
     Route: 048
     Dates: start: 1983
  2. ATENOLOL [Suspect]
     Indication: HYPERTENSION
     Route: 048
  3. ATACAND [Suspect]
     Indication: BLOOD PRESSURE ABNORMAL
     Route: 048
     Dates: start: 200811
  4. ZESTRIL [Suspect]
     Indication: BLOOD PRESSURE DIASTOLIC INCREASED
     Dosage: 5 MG EVERY OTHER DAY
     Route: 048
     Dates: start: 2009
  5. CRESTOR [Suspect]
     Indication: HYPERCHOLESTEROLAEMIA
     Route: 048
     Dates: start: 200811
  6. CRESTOR [Suspect]
     Indication: HYPERCHOLESTEROLAEMIA
     Route: 048
     Dates: start: 2009
  7. CRESTOR [Suspect]
     Indication: HYPERCHOLESTEROLAEMIA
     Route: 048
     Dates: start: 201009, end: 201010
  8. CRESTOR [Suspect]
     Indication: HYPERCHOLESTEROLAEMIA
     Route: 048
     Dates: start: 201010
  9. LIPITOR [Concomitant]

REACTIONS (10)
  - Sports injury [Unknown]
  - Myalgia [Unknown]
  - Blood cholesterol increased [Unknown]
  - Stress [Unknown]
  - Cough [Unknown]
  - Dysgeusia [Unknown]
  - Seasonal allergy [Unknown]
  - Headache [Unknown]
  - Intentional drug misuse [Unknown]
  - Drug ineffective [Unknown]
